FAERS Safety Report 21486328 (Version 1)
Quarter: 2022Q4

REPORT INFORMATION
  Report Type: Spontaneous
  Country: DE (occurrence: DE)
  Receive Date: 20221020
  Receipt Date: 20221020
  Transmission Date: 20230112
  Serious: Yes (Other)
  Sender: FDA-Public Use
  Company Number: DE-009507513-2210DEU006950

PATIENT
  Age: 51 Year
  Sex: Male

DRUGS (1)
  1. PEMBROLIZUMAB [Suspect]
     Active Substance: PEMBROLIZUMAB
     Indication: Non-small cell lung cancer
     Dosage: UNK

REACTIONS (3)
  - Immune-mediated encephalitis [Recovered/Resolved with Sequelae]
  - Immune-mediated arthritis [Recovered/Resolved with Sequelae]
  - Immune-mediated dermatitis [Recovered/Resolved with Sequelae]
